FAERS Safety Report 10143413 (Version 3)
Quarter: 2016Q2

REPORT INFORMATION
  Report Type: Spontaneous
  Country: GB (occurrence: GB)
  Receive Date: 20140430
  Receipt Date: 20160530
  Transmission Date: 20160815
  Serious: Yes (Other)
  Sender: FDA-Public Use
  Company Number: GB-JNJFOC-20140409328

PATIENT
  Age: 84 Year
  Sex: Male

DRUGS (8)
  1. METFORMIN [Concomitant]
     Active Substance: METFORMIN HYDROCHLORIDE
     Indication: TYPE 2 DIABETES MELLITUS
     Route: 065
  2. PREDNISONE. [Suspect]
     Active Substance: PREDNISONE
     Indication: PROSTATE CANCER
     Route: 065
     Dates: start: 20140309, end: 20140408
  3. OMEPRAZOLE. [Concomitant]
     Active Substance: OMEPRAZOLE
     Route: 065
  4. ZYTIGA [Suspect]
     Active Substance: ABIRATERONE ACETATE
     Indication: PROSTATE CANCER
     Route: 048
     Dates: start: 20140309, end: 20140408
  5. ISOCARBOXAZID [Concomitant]
     Active Substance: ISOCARBOXAZID
     Route: 065
  6. FERROUS GLUCONATE [Concomitant]
     Active Substance: FERROUS GLUCONATE
     Route: 065
  7. GABAPENTIN. [Concomitant]
     Active Substance: GABAPENTIN
     Route: 065
  8. AMLODIPINE [Concomitant]
     Active Substance: AMLODIPINE BESYLATE
     Route: 065

REACTIONS (12)
  - Blood glucose increased [Unknown]
  - Depression [Unknown]
  - Angina pectoris [Unknown]
  - Genital pain [Unknown]
  - Neck pain [Unknown]
  - Fatigue [Unknown]
  - Hypertension [Unknown]
  - Adverse drug reaction [Unknown]
  - Micturition disorder [Unknown]
  - Muscular weakness [Unknown]
  - Balance disorder [Unknown]
  - Dyspnoea [Unknown]
